FAERS Safety Report 9556427 (Version 1)
Quarter: 2013Q3

REPORT INFORMATION
  Report Type: Spontaneous
  Country: US (occurrence: None)
  Receive Date: 20130906
  Receipt Date: 20130906
  Transmission Date: 20140515
  Serious: Yes (Other)
  Sender: FDA-Public Use
  Company Number: 163-POMAL-13061657

PATIENT
  Age: 62 Year
  Sex: Female

DRUGS (10)
  1. POMALYST [Suspect]
     Indication: PLASMA CELL MYELOMA
     Dates: start: 20130425
  2. PANTOPRAZOLE [Concomitant]
  3. KETOCONAZOLE [Concomitant]
  4. ACYCLOVIR (ACICLOVIR) [Concomitant]
  5. FOLIC ACID [Concomitant]
  6. NYSTATIN [Concomitant]
  7. FUNGOID TINCTURE (DAKTACORT) [Concomitant]
  8. BACTRIM [Concomitant]
  9. COLACE [Concomitant]
  10. MELATONIN [Concomitant]

REACTIONS (1)
  - Full blood count decreased [None]
